FAERS Safety Report 15669168 (Version 1)
Quarter: 2018Q4

REPORT INFORMATION
  Report Type: Report from Study
  Country: US (occurrence: US)
  Receive Date: 20181129
  Receipt Date: 20181129
  Transmission Date: 20190205
  Serious: Yes (Other)
  Sender: FDA-Public Use
  Company Number: US-GILEAD-2018-0377307

PATIENT
  Age: 63 Year
  Sex: Female

DRUGS (4)
  1. REMODULIN [Concomitant]
     Active Substance: TREPROSTINIL
  2. AMBRISENTAN [Suspect]
     Active Substance: AMBRISENTAN
     Indication: PULMONARY ARTERIAL HYPERTENSION
     Dosage: 10 MG, QD
     Route: 065
     Dates: start: 20180827
  3. TADALAFIL. [Concomitant]
     Active Substance: TADALAFIL
  4. MYCOPHENOLATE [Concomitant]
     Active Substance: MYCOPHENOLIC ACID

REACTIONS (5)
  - Muscle spasms [Not Recovered/Not Resolved]
  - Pain in jaw [Unknown]
  - Pulmonary arterial hypertension [Not Recovered/Not Resolved]
  - Headache [Unknown]
  - Diarrhoea [Unknown]
